FAERS Safety Report 20830566 (Version 13)
Quarter: 2025Q2

REPORT INFORMATION
  Report Type: Report from Study
  Country: CA (occurrence: CA)
  Receive Date: 20220514
  Receipt Date: 20250529
  Transmission Date: 20250717
  Serious: Yes (Hospitalization, Other)
  Sender: TAKEDA
  Company Number: CA-TAKEDA-2021TUS072586

PATIENT
  Age: 2 Year
  Sex: Female
  Weight: 17 kg

DRUGS (17)
  1. TEDUGLUTIDE [Suspect]
     Active Substance: TEDUGLUTIDE
     Indication: Short-bowel syndrome
     Dosage: 0.8 MILLIGRAM, QD
     Dates: start: 20211110
  2. TEDUGLUTIDE [Suspect]
     Active Substance: TEDUGLUTIDE
     Dosage: 0.8 MILLIGRAM, QD
  3. TEDUGLUTIDE [Suspect]
     Active Substance: TEDUGLUTIDE
     Dosage: 0.8 MILLIGRAM, QD
  4. TEDUGLUTIDE [Suspect]
     Active Substance: TEDUGLUTIDE
     Dosage: 0.8 MILLIGRAM, QD
  5. TEDUGLUTIDE [Suspect]
     Active Substance: TEDUGLUTIDE
     Dosage: 0.91 MILLIGRAM, QD
  6. TEDUGLUTIDE [Suspect]
     Active Substance: TEDUGLUTIDE
     Dosage: 0.91 MILLIGRAM, QD
  7. TEDUGLUTIDE [Suspect]
     Active Substance: TEDUGLUTIDE
     Dosage: 0.90 MILLIGRAM, QD
  8. TEDUGLUTIDE [Suspect]
     Active Substance: TEDUGLUTIDE
     Dosage: 1 MILLIGRAM, QD
  9. TEDUGLUTIDE [Suspect]
     Active Substance: TEDUGLUTIDE
     Dosage: 1.1 MILLIGRAM, QD
  10. TEDUGLUTIDE [Suspect]
     Active Substance: TEDUGLUTIDE
     Dosage: UNK UNK, QD
  11. VITAMIN K [Concomitant]
     Active Substance: PHYTONADIONE
     Indication: Product used for unknown indication
     Dosage: 1 MILLIGRAM, QD
  12. VITAMIN B12 [Concomitant]
     Active Substance: CYANOCOBALAMIN
     Indication: Product used for unknown indication
     Dosage: UNK UNK, QD
  13. VITAMIN D NOS [Concomitant]
     Active Substance: CHOLECALCIFEROL\ERGOCALCIFEROL
     Indication: Product used for unknown indication
     Dosage: 7000 INTERNATIONAL UNIT, QD
  14. VITAMIN D NOS [Concomitant]
     Active Substance: CHOLECALCIFEROL\ERGOCALCIFEROL
  15. Fenadin [Concomitant]
     Indication: Product used for unknown indication
     Dosage: 3 MILLILITER, QD
  16. TYLENOL [Concomitant]
     Active Substance: ACETAMINOPHEN
     Indication: Abdominal discomfort
  17. Intravenous potassium chloride [Concomitant]
     Indication: Product used for unknown indication
     Dosage: 700 MILLILITER, QD
     Dates: start: 202107, end: 20220103

REACTIONS (41)
  - Vascular device infection [Unknown]
  - Intestinal obstruction [Recovered/Resolved]
  - Stoma prolapse [Not Recovered/Not Resolved]
  - Colitis [Unknown]
  - Gastrointestinal infection [Recovering/Resolving]
  - Diarrhoea [Not Recovered/Not Resolved]
  - Abdominal discomfort [Unknown]
  - Rhinorrhoea [Recovering/Resolving]
  - Faecal volume decreased [Unknown]
  - Faeces discoloured [Recovered/Resolved]
  - Urine output increased [Recovering/Resolving]
  - Stoma complication [Unknown]
  - Flatulence [Recovered/Resolved]
  - Nasopharyngitis [Recovered/Resolved]
  - Cough [Not Recovered/Not Resolved]
  - Gastrointestinal stoma complication [Recovering/Resolving]
  - Asthenia [Not Recovered/Not Resolved]
  - Irritability [Recovered/Resolved]
  - Feeling drunk [Recovered/Resolved]
  - Thirst [Recovered/Resolved]
  - Fatigue [Not Recovered/Not Resolved]
  - Swelling face [Recovered/Resolved]
  - Stoma site discharge [Unknown]
  - Micturition urgency [Unknown]
  - Gastrointestinal stoma output increased [Unknown]
  - Urine output decreased [Unknown]
  - COVID-19 [Unknown]
  - Weight increased [Recovered/Resolved]
  - Abnormal faeces [Unknown]
  - Pyrexia [Not Recovered/Not Resolved]
  - Pain [Not Recovered/Not Resolved]
  - Urine abnormality [Unknown]
  - Weight fluctuation [Unknown]
  - Gastrointestinal microorganism overgrowth [Unknown]
  - Product dose omission issue [Unknown]
  - Sleep disorder [Unknown]
  - Abdominal pain upper [Unknown]
  - Vomiting [Recovered/Resolved]
  - Decreased appetite [Not Recovered/Not Resolved]
  - Abdominal distension [Unknown]
  - Abdominal pain [Recovered/Resolved]

NARRATIVE: CASE EVENT DATE: 20211112
